FAERS Safety Report 19469711 (Version 1)
Quarter: 2021Q2

REPORT INFORMATION
  Report Type: Spontaneous
  Country: FR (occurrence: FR)
  Receive Date: 20210628
  Receipt Date: 20210628
  Transmission Date: 20210717
  Serious: Yes (Hospitalization, Other)
  Sender: FDA-Public Use
  Company Number: FR-GLAXOSMITHKLINE-FRCH2021040875

PATIENT
  Age: 31 Year
  Sex: Female
  Weight: 60 kg

DRUGS (4)
  1. ZOMIGORO [Suspect]
     Active Substance: ZOLMITRIPTAN
     Indication: HEADACHE
     Dosage: 6 DF, 1 MONTH
     Route: 048
     Dates: end: 20200907
  2. SPIFEN [Suspect]
     Active Substance: IBUPROFEN
     Indication: HEADACHE
     Dosage: 800 MG, QD
     Route: 048
     Dates: start: 2003, end: 20200907
  3. IBUPROFEN. [Suspect]
     Active Substance: IBUPROFEN
     Indication: HEADACHE
     Dosage: 800 MG, QD
     Route: 048
     Dates: start: 1990, end: 2003
  4. PRONTALGINE (CAFFEINE/CODEINE PHOSPHATE/PARACETAMOL) [Suspect]
     Active Substance: ACETAMINOPHEN\CAFFEINE\CODEINE PHOSPHATE
     Indication: HEADACHE
     Dosage: 3 DF, QD
     Route: 048
     Dates: end: 20200907

REACTIONS (2)
  - Headache [Not Recovered/Not Resolved]
  - Drug abuse [Not Recovered/Not Resolved]

NARRATIVE: CASE EVENT DATE: 1990
